FAERS Safety Report 17565025 (Version 1)
Quarter: 2020Q1

REPORT INFORMATION
  Report Type: Report from Study
  Country: US (occurrence: US)
  Receive Date: 20200320
  Receipt Date: 20200320
  Transmission Date: 20200409
  Serious: Yes (Hospitalization)
  Sender: FDA-Public Use
  Company Number: US-BIOGEN-2020BI00850472

PATIENT
  Age: 38 Year
  Sex: Female

DRUGS (1)
  1. TYSABRI [Suspect]
     Active Substance: NATALIZUMAB
     Indication: MULTIPLE SCLEROSIS
     Route: 042
     Dates: start: 20150928

REACTIONS (9)
  - Feeling abnormal [Not Recovered/Not Resolved]
  - Gastrointestinal infection [Recovered/Resolved]
  - Cerebral disorder [Not Recovered/Not Resolved]
  - Brain herniation [Not Recovered/Not Resolved]
  - Procedural vomiting [Recovered/Resolved]
  - Rhinorrhoea [Recovered/Resolved]
  - Fear [Unknown]
  - Intracranial pressure increased [Not Recovered/Not Resolved]
  - Cerebrospinal fluid leakage [Not Recovered/Not Resolved]

NARRATIVE: CASE EVENT DATE: 2020
